APPROVED DRUG PRODUCT: PRIMSOL
Active Ingredient: TRIMETHOPRIM HYDROCHLORIDE
Strength: EQ 50MG BASE/5ML
Dosage Form/Route: SOLUTION;ORAL
Application: N074973 | Product #001
Applicant: PANGEA PHARMACEUTICALS LLC
Approved: Jan 24, 2000 | RLD: Yes | RS: No | Type: DISCN